FAERS Safety Report 17381624 (Version 1)
Quarter: 2020Q1

REPORT INFORMATION
  Report Type: Spontaneous
  Country: US (occurrence: US)
  Receive Date: 20200206
  Receipt Date: 20200206
  Transmission Date: 20200409
  Serious: Yes (Life-Threatening)
  Sender: FDA-Public Use
  Company Number: None

PATIENT
  Age: 81 Year
  Sex: Male
  Weight: 75 kg

DRUGS (2)
  1. LAMOTRIGINE. [Suspect]
     Active Substance: LAMOTRIGINE
     Indication: DEPRESSION
     Route: 048
     Dates: start: 20190925, end: 20191010
  2. VRAYLAR [Concomitant]
     Active Substance: CARIPRAZINE
     Dates: start: 20190220

REACTIONS (8)
  - Thoracic vertebral fracture [None]
  - Therapy cessation [None]
  - Fall [None]
  - Spinal fracture [None]
  - Platelet count decreased [None]
  - Balance disorder [None]
  - Rib fracture [None]
  - Blood disorder [None]

NARRATIVE: CASE EVENT DATE: 20191010
